FAERS Safety Report 6673054-X (Version None)
Quarter: 2010Q2

REPORT INFORMATION
  Report Type: 
  Country: None (occurrence: None)
  Receive Date: 20100408
  Receipt Date: 20100331
  Transmission Date: 20101027
  Serious: Yes (Other)
  Sender: FDA-Public Use
  Company Number: PHEH2010US02753

PATIENT
  Sex: Female

DRUGS (1)
  1. EXJADE [Suspect]
     Indication: BLOOD IRON INCREASED
     Dosage: 1500 MG, QD
     Route: 048

REACTIONS (3)
  - BRONCHITIS [None]
  - FEELING ABNORMAL [None]
  - TREATMENT NONCOMPLIANCE [None]
